FAERS Safety Report 12489811 (Version 6)
Quarter: 2017Q1

REPORT INFORMATION
  Report Type: Report from Study
  Country: US (occurrence: US)
  Receive Date: 20160622
  Receipt Date: 20170127
  Transmission Date: 20170428
  Serious: Yes (Other)
  Sender: FDA-Public Use
  Company Number: US-SA-2016SA071992

PATIENT
  Age: 57 Year
  Sex: Male
  Weight: 104.32 kg

DRUGS (13)
  1. COPAXONE [Concomitant]
     Active Substance: GLATIRAMER ACETATE
     Indication: MULTIPLE SCLEROSIS
     Dosage: SHOTS
  2. ASPIRIN. [Concomitant]
     Active Substance: ASPIRIN
     Indication: HEADACHE
     Dosage: 1-500 MG
     Dates: start: 1973
  3. VITAMIN B12 [Concomitant]
     Active Substance: CYANOCOBALAMIN
     Dates: start: 2013
  4. SOLU-MEDROL [Concomitant]
     Active Substance: METHYLPREDNISOLONE SODIUM SUCCINATE
  5. AUBAGIO [Concomitant]
     Active Substance: TERIFLUNOMIDE
     Indication: MULTIPLE SCLEROSIS
  6. IBUPROFEN. [Concomitant]
     Active Substance: IBUPROFEN
     Indication: PAIN
     Dosage: 1-200 MG
     Dates: start: 1973
  7. LEMTRADA [Suspect]
     Active Substance: ALEMTUZUMAB
     Indication: MULTIPLE SCLEROSIS
     Route: 041
     Dates: start: 20160321, end: 20160325
  8. VITAMIN C [Concomitant]
     Active Substance: ASCORBIC ACID
     Dates: start: 2013
  9. CITALOPRAM [Concomitant]
     Active Substance: CITALOPRAM HYDROBROMIDE
     Dates: start: 20161003
  10. ALIVE [Concomitant]
     Dates: start: 2013
  11. ASPIRIN. [Concomitant]
     Active Substance: ASPIRIN
     Indication: BACK PAIN
     Dosage: 1-500 MG
     Dates: start: 1973
  12. IBUPROFEN. [Concomitant]
     Active Substance: IBUPROFEN
     Indication: BACK PAIN
     Dosage: 1-200 MG
     Dates: start: 1973
  13. VITAMIN D3 [Concomitant]
     Active Substance: CHOLECALCIFEROL
     Dates: start: 2013

REACTIONS (10)
  - White blood cell count abnormal [Unknown]
  - Pigmentation disorder [Recovered/Resolved]
  - Swelling [Recovered/Resolved]
  - Dry skin [Not Recovered/Not Resolved]
  - Joint swelling [Recovered/Resolved]
  - Nuclear magnetic resonance imaging abnormal [Not Recovered/Not Resolved]
  - Weight increased [Recovering/Resolving]
  - Dysphemia [Not Recovered/Not Resolved]
  - Pruritus [Not Recovered/Not Resolved]
  - Haemorrhage [Not Recovered/Not Resolved]

NARRATIVE: CASE EVENT DATE: 2016
